FAERS Safety Report 9066314 (Version 1)
Quarter: 2013Q1

REPORT INFORMATION
  Report Type: Spontaneous
  Country: CH (occurrence: CH)
  Receive Date: 20130214
  Receipt Date: 20130214
  Transmission Date: 20140127
  Serious: Yes (Disabling)
  Sender: FDA-Public Use
  Company Number: CH-SANOFI-AVENTIS-2013SA012119

PATIENT
  Age: 36 Year
  Sex: Female

DRUGS (12)
  1. PLAQUENIL [Suspect]
     Indication: SYSTEMIC LUPUS ERYTHEMATOSUS
     Route: 048
     Dates: start: 2009, end: 20120915
  2. CHLOROQUINE SULFATE [Suspect]
     Indication: PRODUCT USED FOR UNKNOWN INDICATION
     Route: 065
     Dates: end: 2009
  3. FLUOXETINE [Concomitant]
     Indication: RAYNAUD^S PHENOMENON
     Dates: start: 2009, end: 2011
  4. ASPIRIN [Concomitant]
  5. PREDNISONE [Concomitant]
  6. PANTOPRAZOLE [Concomitant]
  7. CALCIMAGON-D3 [Concomitant]
  8. CURCUMA LONGA [Concomitant]
     Dates: start: 201209, end: 201211
  9. CHAMOMILLA RECUTITA [Concomitant]
  10. GINGER [Concomitant]
  11. THYMUS VULGARIS [Concomitant]
  12. CHOPHYTOL [Concomitant]

REACTIONS (4)
  - Papilloedema [Recovered/Resolved]
  - Vasculitis [Unknown]
  - Visual impairment [Not Recovered/Not Resolved]
  - Condition aggravated [Not Recovered/Not Resolved]
